FAERS Safety Report 6079722-5 (Version None)
Quarter: 2009Q1

REPORT INFORMATION
  Report Type: 
  Country: None (occurrence: None)
  Receive Date: 20090211
  Receipt Date: 20090128
  Transmission Date: 20090719
  Serious: Yes (Hospitalization)
  Sender: FDA-Public Use
  Company Number: 2008BI034028

PATIENT
  Age: 55 Year
  Sex: Male

DRUGS (9)
  1. ZEVALIN [Suspect]
     Indication: MANTLE CELL LYMPHOMA
     Dosage: 25 MCI;1X;IV
     Route: 042
     Dates: start: 20070504, end: 20070504
  2. RITUXIMAB [Concomitant]
  3. CYCLOPHOSPHAMIDE [Concomitant]
  4. DOXORUBICIN HCL [Concomitant]
  5. VINCRISTINE [Concomitant]
  6. DEXAMETHASONE [Concomitant]
  7. METHOTREXATE [Concomitant]
  8. CYTARABINE [Concomitant]
  9. PREV MEDS = UNKNOWN [Concomitant]

REACTIONS (5)
  - INTESTINAL ANASTOMOSIS [None]
  - INTESTINAL FISTULA [None]
  - POST PROCEDURAL COMPLICATION [None]
  - PYREXIA [None]
  - RESECTION OF RECTUM [None]
